FAERS Safety Report 4428672-6 (Version None)
Quarter: 2004Q3

REPORT INFORMATION
  Report Type: 
  Country: None (occurrence: None)
  Receive Date: 20040818
  Receipt Date: 20031008
  Transmission Date: 20050211
  Serious: No
  Sender: FDA-Public Use
  Company Number: US-BRISTOL-MYERS SQUIBB COMPANY-12406237

PATIENT
  Age: 62 Year
  Sex: Male

DRUGS (9)
  1. TEQUIN [Suspect]
  2. CLARITIN [Suspect]
     Indication: HYPERSENSITIVITY
     Dosage: EXP. DATE 07/2005
     Route: 048
     Dates: start: 20030903
  3. PRAVACHOL [Concomitant]
  4. ALTACE [Concomitant]
  5. XANAX [Concomitant]
  6. PROZAC [Concomitant]
     Dosage: DAILY AND WEEKLY
  7. PRANDIN [Concomitant]
  8. PROCARDIA XL [Concomitant]
  9. ECOTRIN [Concomitant]

REACTIONS (1)
  - BLOOD GLUCOSE INCREASED [None]
